FAERS Safety Report 7978183-6 (Version None)
Quarter: 2011Q4

REPORT INFORMATION
  Report Type: 
  Country: None (occurrence: None)
  Receive Date: 20111207
  Receipt Date: 20111123
  Transmission Date: 20120403
  Serious: Yes (Death, Hospitalization, Other)
  Sender: FDA-Public Use
  Company Number: 2011MA012743

PATIENT
  Age: 75 Year
  Sex: Female
  Weight: 44.4525 kg

DRUGS (12)
  1. LASIX [Concomitant]
  2. LORATADINE [Concomitant]
  3. DILTIAZEM HCL [Concomitant]
  4. VALSARTAN [Concomitant]
  5. DIGOXIN [Suspect]
     Indication: ATRIAL FLUTTER
     Dosage: 0.125 MG;QD;PO
     Route: 048
     Dates: start: 20070119, end: 20080120
  6. DIGOXIN [Suspect]
     Indication: ATRIAL FIBRILLATION
     Dosage: 0.125 MG;QD;PO
     Route: 048
     Dates: start: 20070119, end: 20080120
  7. SIMVASTATIN [Concomitant]
  8. AZITHROMYCIN [Concomitant]
  9. ASPIRIN [Concomitant]
  10. METOPROLOL TARTRATE [Concomitant]
  11. DIOVAN [Concomitant]
  12. POTASSIUM CHLORIDE [Concomitant]

REACTIONS (50)
  - INJURY [None]
  - DECREASED APPETITE [None]
  - DYSPHONIA [None]
  - PAIN [None]
  - DYSPHAGIA [None]
  - CARDIAC FAILURE CONGESTIVE [None]
  - AORTIC VALVE INCOMPETENCE [None]
  - PLEURAL EFFUSION [None]
  - MITRAL VALVE INCOMPETENCE [None]
  - ATRIAL FLUTTER [None]
  - ATRIOVENTRICULAR BLOCK [None]
  - MITRAL VALVE PROLAPSE [None]
  - FOREIGN BODY [None]
  - HYPOKALAEMIA [None]
  - UNEVALUABLE EVENT [None]
  - ANHEDONIA [None]
  - ACUTE PRERENAL FAILURE [None]
  - RENAL FAILURE [None]
  - PULMONARY HYPERTENSION [None]
  - REFUSAL OF TREATMENT BY PATIENT [None]
  - ECONOMIC PROBLEM [None]
  - ACTIVITIES OF DAILY LIVING IMPAIRED [None]
  - DYSGEUSIA [None]
  - CARDIOACTIVE DRUG LEVEL INCREASED [None]
  - EMOTIONAL DISORDER [None]
  - DIARRHOEA [None]
  - NASOPHARYNGITIS [None]
  - PNEUMONIA [None]
  - RENAL FAILURE ACUTE [None]
  - BLOOD CHOLESTEROL INCREASED [None]
  - MITRAL VALVE DISEASE [None]
  - WEIGHT DECREASED [None]
  - GENERAL PHYSICAL HEALTH DETERIORATION [None]
  - ARTERIOSCLEROSIS [None]
  - HYPERTENSION [None]
  - PULMONARY OEDEMA [None]
  - RIGHT VENTRICULAR FAILURE [None]
  - CENTRAL VENOUS PRESSURE INCREASED [None]
  - TOXICITY TO VARIOUS AGENTS [None]
  - BENIGN NEOPLASM [None]
  - OESOPHAGEAL HYPOMOTILITY [None]
  - TEARFULNESS [None]
  - ATRIAL FIBRILLATION [None]
  - LEFT ATRIAL DILATATION [None]
  - RENAL CYST [None]
  - HYPERLIPIDAEMIA [None]
  - SOCIAL AVOIDANT BEHAVIOUR [None]
  - ANXIETY [None]
  - CARDIAC MURMUR [None]
  - MENTAL DISORDER [None]
